FAERS Safety Report 14303340 (Version 6)
Quarter: 2018Q2

REPORT INFORMATION
  Report Type: Spontaneous
  Country: IT (occurrence: IT)
  Receive Date: 20171219
  Receipt Date: 20180403
  Transmission Date: 20180711
  Serious: Yes (Hospitalization, Other)
  Sender: FDA-Public Use
  Company Number: IT-PFIZER INC-2017532216

PATIENT
  Age: 57 Year
  Sex: Female

DRUGS (2)
  1. LORAZEPAM. [Suspect]
     Active Substance: LORAZEPAM
     Dosage: 10 MG (4 TABLETS), SINGLE
     Dates: start: 20171201
  2. METADONE CLORIDRATO MOLTENI [Suspect]
     Active Substance: METHADONE HYDROCHLORIDE
     Dosage: 250 MG (10 VIALS), SINGLE
     Dates: start: 20171201

REACTIONS (3)
  - Suicide attempt [Recovered/Resolved]
  - Respiratory depression [Recovered/Resolved]
  - Drug abuse [Unknown]

NARRATIVE: CASE EVENT DATE: 20171201
